FAERS Safety Report 21024051 (Version 1)
Quarter: 2022Q2

REPORT INFORMATION
  Report Type: Spontaneous
  Country: ES (occurrence: ES)
  Receive Date: 20220629
  Receipt Date: 20220629
  Transmission Date: 20220721
  Serious: Yes (Other)
  Sender: FDA-Public Use
  Company Number: None

PATIENT
  Age: 69 Year
  Sex: Female

DRUGS (6)
  1. FUROSEMIDE [Suspect]
     Active Substance: FUROSEMIDE
     Indication: Atrial fibrillation
     Dosage: 40.0 MG EVERY 24 HOURS
     Route: 048
     Dates: start: 20210320, end: 20210323
  2. BISOPROLOL NORMON 5 mg FILM-COATED TABLETS EFG, 60 [Concomitant]
     Indication: Acute myocardial infarction
     Dosage: MG IRREGULAR
     Route: 048
     Dates: start: 20190109
  3. ALOPURINOL NORMON 100 mg TABLETS EFG, 100 tablets [Concomitant]
     Indication: Gout
     Dosage: 100.0 MG BREAKFAST
     Route: 048
     Dates: start: 20180130
  4. MOMETASONE FUROATE CINFA 50 MICROGRAMS/SPRAY SUSPENSION FOR NASAL SPRA [Concomitant]
     Indication: Rhinitis
     Dosage: 100.0 MCG EVERY 24 HOURS
     Route: 045
     Dates: start: 20201014
  5. OMEPRAZOL PENSA 20 mg HARD GASTRO-RESISTANT CAPSULES EFG, 56 capsules [Concomitant]
     Indication: Persistent depressive disorder
     Dosage: 20.0 MG AFTER BREAKFAST
     Route: 048
     Dates: start: 20190822
  6. TRAZODONE NORMON 100 MG TABLETS EFG, 60 tablets (Aluminium/PVDC-PE Bli [Concomitant]
     Indication: Persistent depressive disorder
     Dosage: 150.0 MG EVERY 24 HOURS NIGHT
     Route: 048
     Dates: start: 20130320

REACTIONS (1)
  - Acute kidney injury [Recovered/Resolved]

NARRATIVE: CASE EVENT DATE: 20210320
